FAERS Safety Report 7871714-6 (Version None)
Quarter: 2011Q4

REPORT INFORMATION
  Report Type: 
  Country: None (occurrence: None)
  Receive Date: 20111004
  Receipt Date: 20100825
  Transmission Date: 20120403
  Serious: No
  Sender: FDA-Public Use
  Company Number: AXC-2010-000225

PATIENT
  Age: 65 Year
  Sex: Female

DRUGS (2)
  1. CARAFATE [Suspect]
     Indication: GASTROOESOPHAGEAL REFLUX DISEASE
     Dosage: 1 G, QID, ORAL
     Route: 048
     Dates: start: 20100822
  2. ZANTAC [Suspect]
     Indication: PRODUCT USED FOR UNKNOWN INDICATION
     Dates: start: 20100822

REACTIONS (2)
  - DIZZINESS [None]
  - FEELING HOT [None]
